FAERS Safety Report 12559115 (Version 2)
Quarter: 2016Q3

REPORT INFORMATION
  Report Type: Spontaneous
  Country: US (occurrence: US)
  Receive Date: 20160715
  Receipt Date: 20160715
  Transmission Date: 20161109
  Serious: Yes (Other)
  Sender: FDA-Public Use
  Company Number: US-TEVA-664818USA

PATIENT
  Age: 46 Year
  Sex: Female

DRUGS (2)
  1. ZECUITY [Suspect]
     Active Substance: SUMATRIPTAN SUCCINATE
     Indication: MIGRAINE
     Route: 062
     Dates: start: 20160529
  2. ZECUITY [Suspect]
     Active Substance: SUMATRIPTAN SUCCINATE
     Route: 062
     Dates: start: 20160616

REACTIONS (12)
  - Application site inflammation [Recovering/Resolving]
  - Application site burn [Recovering/Resolving]
  - Application site scar [Recovering/Resolving]
  - Application site erythema [Recovered/Resolved]
  - Drug ineffective [Unknown]
  - Application site vesicles [Recovered/Resolved]
  - Application site swelling [Recovered/Resolved]
  - Product quality issue [Unknown]
  - Application site paraesthesia [Recovered/Resolved]
  - Application site urticaria [Recovered/Resolved]
  - Application site discolouration [Recovering/Resolving]
  - Application site pain [Recovered/Resolved]

NARRATIVE: CASE EVENT DATE: 20160529
